FAERS Safety Report 21979707 (Version 1)
Quarter: 2023Q1

REPORT INFORMATION
  Report Type: Spontaneous
  Country: US (occurrence: None)
  Receive Date: 20230209
  Receipt Date: 20230209
  Transmission Date: 20230418
  Serious: Yes (Hospitalization)
  Sender: FDA-Public Use
  Company Number: None

PATIENT
  Age: 66 Year
  Sex: Male
  Weight: 158.76 kg

DRUGS (4)
  1. ARTIFICIAL TEARS LUBRICANT EYE DROPS (CARBOXYMETHYLCELLULOSE SODIUM) [Suspect]
     Active Substance: CARBOXYMETHYLCELLULOSE SODIUM
     Indication: Dry eye
     Dosage: OTHER QUANTITY : 1 OR 2 DROPS;?FREQUENCY : AS NEEDED;?
     Route: 031
     Dates: end: 20220111
  2. NITRIC OXIDE [Concomitant]
     Active Substance: NITRIC OXIDE
  3. ALEVE [Concomitant]
     Active Substance: NAPROXEN SODIUM
  4. LORTAB [Suspect]
     Active Substance: ACETAMINOPHEN\HYDROCODONE BITARTRATE

REACTIONS (3)
  - Instillation site irritation [None]
  - Chemical burns of eye [None]
  - Eye pain [None]

NARRATIVE: CASE EVENT DATE: 20210111
